FAERS Safety Report 23097582 (Version 1)
Quarter: 2023Q4

REPORT INFORMATION
  Report Type: Spontaneous
  Country: US (occurrence: None)
  Receive Date: 20231023
  Receipt Date: 20231023
  Transmission Date: 20240109
  Serious: Yes (Life-Threatening, Disabling)
  Sender: FDA-Public Use
  Company Number: None

PATIENT
  Age: 37 Year
  Sex: Female
  Weight: 99.9 kg

DRUGS (10)
  1. NAPROXEN [Suspect]
     Active Substance: NAPROXEN
     Indication: Anxiety
     Route: 048
     Dates: start: 20171207, end: 20231004
  2. NAPROXEN [Suspect]
     Active Substance: NAPROXEN
     Indication: Depression
  3. AMITRIPTYLINE [Suspect]
     Active Substance: AMITRIPTYLINE
  4. LUNESTA [Suspect]
     Active Substance: ESZOPICLONE
  5. CYCLOBENZAPRINE [Suspect]
     Active Substance: CYCLOBENZAPRINE
  6. LEXAPRO [Suspect]
     Active Substance: ESCITALOPRAM OXALATE
  7. CELEXA [Suspect]
     Active Substance: CITALOPRAM HYDROBROMIDE
  8. CONCERTA [Concomitant]
     Active Substance: METHYLPHENIDATE HYDROCHLORIDE
  9. MIRALAX [Concomitant]
     Active Substance: POLYETHYLENE GLYCOL 3350
  10. MELATONIN [Concomitant]
     Active Substance: MELATONIN

REACTIONS (2)
  - Product packaging issue [None]
  - Product label issue [None]

NARRATIVE: CASE EVENT DATE: 20231004
